FAERS Safety Report 4404233-X (Version None)
Quarter: 2004Q3

REPORT INFORMATION
  Report Type: 
  Country: None (occurrence: None)
  Receive Date: 20040720
  Receipt Date: 20040709
  Transmission Date: 20050211
  Serious: Yes (Death)
  Sender: FDA-Public Use
  Company Number: JP-JNJFOC-20031204161

PATIENT
  Age: 68 Year
  Sex: Male

DRUGS (2)
  1. FENTANYL [Suspect]
     Indication: CANCER PAIN
     Dosage: 5 MG, 1 IN 3 DAY, TRANSDERMAL
     Route: 062
     Dates: start: 20031009, end: 20031013
  2. MORPHINE [Concomitant]

REACTIONS (1)
  - DEATH [None]
